FAERS Safety Report 8575922 (Version 3)
Quarter: 2014Q1

REPORT INFORMATION
  Report Type: Spontaneous
  Country: US (occurrence: None)
  Receive Date: 20120323
  Receipt Date: 20140306
  Transmission Date: 20141002
  Serious: Yes (Other)
  Sender: FDA-Public Use
  Company Number: 163-21880-11061803

PATIENT
  Age: 81 Year
  Sex: Female
  Weight: 73.48 kg

DRUGS (14)
  1. REVLIMID [Suspect]
     Indication: PLASMA CELL MYELOMA
     Dosage: 5 MG, 1 IN 1 D, PO
     Route: 048
     Dates: start: 20110505
  2. PRILOSEC [Concomitant]
  3. DIOVAN [Concomitant]
  4. DEXAMETHASONE (DEXAMETHASONE) [Concomitant]
  5. MULTIVITAMINS (MULTIVITAMINS) [Concomitant]
  6. FLAXSEED OIL (LINSEED OIL) [Concomitant]
  7. GARLIC (GARLIC) [Concomitant]
  8. FISH OIL (FISH OIL) [Concomitant]
  9. BAYER ASPIRIN (ACETYLSALICYLIC ACID) [Concomitant]
  10. VITAMIN C (ASCORBIC ACID) [Concomitant]
  11. TUSSIONEX PENNKINETIC (TUSSIONEX PENNKINETIC) [Concomitant]
  12. VITAMIN B12 (CYANOCOBALAMIN) [Concomitant]
  13. VITAMIN D (ERGOCALCIFEROL) [Concomitant]
  14. CALCIUM (CALCIUM) [Concomitant]

REACTIONS (10)
  - Gait disturbance [None]
  - Constipation [None]
  - Diarrhoea [None]
  - Headache [None]
  - Dizziness [None]
  - Pigmentation disorder [None]
  - Feeling abnormal [None]
  - Feeling hot [None]
  - Fatigue [None]
  - Haemoglobin decreased [None]
